FAERS Safety Report 12839407 (Version 1)
Quarter: 2016Q4

REPORT INFORMATION
  Report Type: Spontaneous
  Country: US (occurrence: US)
  Receive Date: 20161011
  Receipt Date: 20161011
  Transmission Date: 20170207
  Serious: Yes (Death)
  Sender: FDA-Public Use
  Company Number: None

PATIENT
  Age: 85 Year
  Sex: Female

DRUGS (1)
  1. REVLIMID [Suspect]
     Active Substance: LENALIDOMIDE
     Indication: PLASMA CELL MYELOMA
     Dosage: 10MG  DAILY X21D/28D  ORAL 3 CYCLES
     Route: 048

REACTIONS (2)
  - Asthenia [None]
  - Unevaluable event [None]

NARRATIVE: CASE EVENT DATE: 20120620
